FAERS Safety Report 23375694 (Version 1)
Quarter: 2024Q1

REPORT INFORMATION
  Report Type: Report from Study
  Country: US (occurrence: US)
  Receive Date: 20240107
  Receipt Date: 20240107
  Transmission Date: 20240410
  Serious: Yes (Other)
  Sender: FDA-Public Use
  Company Number: US-ABBVIE-5571381

PATIENT
  Sex: Male

DRUGS (1)
  1. VENCLEXTA [Suspect]
     Active Substance: VENETOCLAX
     Indication: Acute myeloid leukaemia (in remission)
     Route: 048
     Dates: start: 202109

REACTIONS (5)
  - Renal failure [Unknown]
  - Pulmonary oedema [Unknown]
  - Arthralgia [Unknown]
  - Weight increased [Unknown]
  - Dyspnoea [Unknown]
